FAERS Safety Report 8980746 (Version 1)
Quarter: 2012Q4

REPORT INFORMATION
  Report Type: 
  Country: NO (occurrence: NO)
  Receive Date: 20121221
  Receipt Date: 20121221
  Transmission Date: 20130627
  Serious: Yes (Hospitalization)
  Sender: FDA-Public Use
  Company Number: NO-PFIZER INC-2012322984

PATIENT
  Age: 44 Year
  Sex: Male
  Weight: 69 kg

DRUGS (1)
  1. ZOLOFT [Suspect]
     Indication: DEPRESSION
     Dosage: 1 DF, 2x/day
     Dates: start: 1997, end: 2007

REACTIONS (6)
  - Mental impairment [Recovered/Resolved]
  - Sight disability [Recovered/Resolved]
  - Depressed mood [Recovered/Resolved]
  - Crying [Recovered/Resolved]
  - Irritability [Recovered/Resolved]
  - Memory impairment [Recovered/Resolved]
